FAERS Safety Report 11771284 (Version 2)
Quarter: 2015Q4

REPORT INFORMATION
  Report Type: Spontaneous
  Country: JP (occurrence: JP)
  Receive Date: 20151124
  Receipt Date: 20151128
  Transmission Date: 20160304
  Serious: Yes (Hospitalization, Other)
  Sender: FDA-Public Use
  Company Number: JP-AMGEN-JPNSP2015123957

PATIENT
  Age: 70 Year
  Sex: Female
  Weight: 43 kg

DRUGS (4)
  1. TOPOTECIN [Concomitant]
     Active Substance: IRINOTECAN HYDROCHLORIDE
     Indication: COLON CANCER
     Dosage: 200 MG, Q2WEEKS
     Route: 041
     Dates: start: 20150619, end: 20150911
  2. CALCIUM LEVOFOLINATE [Concomitant]
     Active Substance: LEVOLEUCOVORIN CALCIUM
     Indication: COLON CANCER
     Dosage: 260 MG, Q2WEEKS
     Route: 041
     Dates: start: 20150619, end: 20150911
  3. 5-FU                               /00098801/ [Concomitant]
     Active Substance: FLUOROURACIL
     Indication: COLON CANCER
     Dosage: 3120 MG, Q2WEEKS
     Route: 041
     Dates: start: 20150619, end: 20150911
  4. VECTIBIX [Suspect]
     Active Substance: PANITUMUMAB
     Indication: COLON CANCER
     Dosage: 260 MG, Q2WEEKS
     Route: 041
     Dates: start: 20150619, end: 20150911

REACTIONS (1)
  - Interstitial lung disease [Not Recovered/Not Resolved]

NARRATIVE: CASE EVENT DATE: 20150925
